FAERS Safety Report 9139941 (Version 1)
Quarter: 2013Q1

REPORT INFORMATION
  Report Type: Spontaneous
  Country: US (occurrence: US)
  Receive Date: 20130305
  Receipt Date: 20130305
  Transmission Date: 20140127
  Serious: Yes (Other)
  Sender: FDA-Public Use
  Company Number: US-PFIZER INC-2013074990

PATIENT
  Age: 80 Year
  Sex: Female
  Weight: 82.54 kg

DRUGS (2)
  1. NORVASC [Suspect]
     Indication: CARDIOVASCULAR DISORDER
     Dosage: 10 MG, 1X/DAY
     Dates: start: 1986
  2. LIPITOR [Suspect]
     Dosage: 10 MG, 1X/DAY

REACTIONS (2)
  - Cerebrovascular accident [Unknown]
  - Atrial fibrillation [Unknown]
